FAERS Safety Report 5802507-9 (Version None)
Quarter: 2008Q3

REPORT INFORMATION
  Report Type: 
  Country: None (occurrence: None)
  Receive Date: 20080708
  Receipt Date: 20080626
  Transmission Date: 20090109
  Serious: Yes (Hospitalization)
  Sender: FDA-Public Use
  Company Number: US-WYE-H04747908

PATIENT
  Sex: Female

DRUGS (6)
  1. EFFEXOR XR [Suspect]
     Indication: DEPRESSION
     Route: 048
     Dates: start: 20070501, end: 20080529
  2. EFFEXOR XR [Suspect]
     Route: 048
     Dates: start: 20080601
  3. TRAZODONE HCL [Concomitant]
     Dosage: UNKNOWN
  4. WELLBUTRIN [Concomitant]
     Dosage: UNKNOWN
  5. PRISTIQ [Suspect]
     Indication: DEPRESSION
     Route: 048
     Dates: start: 20080530, end: 20080601
  6. KLONOPIN [Concomitant]
     Dosage: UNKNOWN

REACTIONS (2)
  - DRUG WITHDRAWAL SYNDROME [None]
  - SUICIDAL IDEATION [None]
